FAERS Safety Report 11307972 (Version 1)
Quarter: 2015Q3

REPORT INFORMATION
  Report Type: Spontaneous
  Country: US (occurrence: US)
  Receive Date: 20150724
  Receipt Date: 20150724
  Transmission Date: 20151125
  Serious: Yes (Other)
  Sender: FDA-Public Use
  Company Number: US-ROCHE-1612043

PATIENT
  Age: 62 Year
  Sex: Male

DRUGS (1)
  1. XOLAIR [Suspect]
     Active Substance: OMALIZUMAB
     Indication: IDIOPATHIC URTICARIA
     Route: 058
     Dates: start: 20150716, end: 20150721

REACTIONS (4)
  - Dyspnoea [Unknown]
  - Swelling face [Unknown]
  - Peripheral swelling [Unknown]
  - Local swelling [Unknown]

NARRATIVE: CASE EVENT DATE: 20150720
